FAERS Safety Report 10041350 (Version 1)
Quarter: 2014Q1

REPORT INFORMATION
  Report Type: Spontaneous
  Country: US (occurrence: None)
  Receive Date: 20140326
  Receipt Date: 20140326
  Transmission Date: 20141002
  Serious: Yes (Hospitalization)
  Sender: FDA-Public Use
  Company Number: None

PATIENT
  Age: 78 Year
  Sex: Male

DRUGS (8)
  1. ALKERAN [Suspect]
     Dosage: 18 MG, X4DAYS Q28 DAYS, PO
     Route: 048
     Dates: start: 20140222
  2. NEPHRO-VITE [Concomitant]
  3. ACYCLOVIR [Concomitant]
  4. IRON [Concomitant]
  5. ASPIRIN [Concomitant]
  6. METOPROLOL [Concomitant]
  7. SIMVASTATIN [Concomitant]
  8. TAMSULOSIN [Concomitant]

REACTIONS (1)
  - White blood cell disorder [None]
